FAERS Safety Report 4377464-5 (Version None)
Quarter: 2004Q2

REPORT INFORMATION
  Report Type: 
  Country: None (occurrence: None)
  Receive Date: 20040615
  Receipt Date: 20040426
  Transmission Date: 20050107
  Serious: Yes (Other)
  Sender: FDA-Public Use
  Company Number: PHRM2004FR01675

PATIENT
  Age: 75 Year
  Sex: Male

DRUGS (7)
  1. LASILIX [Suspect]
     Dosage: 40 MG, QD
  2. NISISCO [Suspect]
     Indication: HYPERTENSION
     Dosage: 1 DF/DAY
     Route: 048
     Dates: start: 20040324, end: 20040422
  3. NISIS [Suspect]
     Dosage: 160 MG, UNK
     Route: 048
  4. NISIS [Suspect]
     Dosage: 80 MG, UNK
  5. KARDEGIC [Concomitant]
     Dosage: 160 MG, QD
     Route: 048
  6. DILTIAZEM HCL [Concomitant]
     Dosage: 300 MG, QD
     Route: 048
  7. DIALGIREX [Concomitant]
     Dosage: 3 DF, DAILY
     Route: 048

REACTIONS (3)
  - BLOOD CHLORIDE DECREASED [None]
  - BLOOD PRESSURE INADEQUATELY CONTROLLED [None]
  - HYPONATRAEMIA [None]
